FAERS Safety Report 24375691 (Version 2)
Quarter: 2025Q1

REPORT INFORMATION
  Report Type: Report from Study
  Country: CA (occurrence: CA)
  Receive Date: 20240928
  Receipt Date: 20250215
  Transmission Date: 20250408
  Serious: Yes (Death, Hospitalization, Other)
  Sender: CELLTRION
  Company Number: CA-CELLTRION INC.-2021CA019468

PATIENT

DRUGS (2)
  1. RITUXIMAB-ABBS [Suspect]
     Active Substance: RITUXIMAB-ABBS
     Indication: Rheumatoid vasculitis
     Route: 042
     Dates: start: 20210608, end: 20250204
  2. RITUXIMAB-ABBS [Suspect]
     Active Substance: RITUXIMAB-ABBS
     Indication: Rheumatoid arthritis
     Route: 042
     Dates: start: 20210608

REACTIONS (8)
  - Death [Fatal]
  - Hospitalisation [Recovered/Resolved]
  - Pleural effusion [Unknown]
  - Dyspnoea [Recovering/Resolving]
  - Haemorrhage [Unknown]
  - Ill-defined disorder [Unknown]
  - Off label use [Unknown]
  - Treatment delayed [Unknown]

NARRATIVE: CASE EVENT DATE: 20240901
